FAERS Safety Report 12220644 (Version 1)
Quarter: 2016Q1

REPORT INFORMATION
  Report Type: Spontaneous
  Country: US (occurrence: None)
  Receive Date: 20160329
  Receipt Date: 20160329
  Transmission Date: 20160526
  Serious: No
  Sender: FDA-Public Use
  Company Number: None

PATIENT
  Age: 47 Year
  Sex: Female
  Weight: 70.76 kg

DRUGS (4)
  1. BIRTH CONTROL PILL [Concomitant]
     Active Substance: UNSPECIFIED INGREDIENT
  2. BUPROPION. [Concomitant]
     Active Substance: BUPROPION
  3. XANAX [Concomitant]
     Active Substance: ALPRAZOLAM
  4. OTEZLA [Suspect]
     Active Substance: APREMILAST
     Indication: PSORIASIS
     Route: 048

REACTIONS (2)
  - Onychomadesis [None]
  - Psoriasis [None]

NARRATIVE: CASE EVENT DATE: 20020201
